FAERS Safety Report 5025825-3 (Version None)
Quarter: 2006Q2

REPORT INFORMATION
  Report Type: 
  Country: None (occurrence: None)
  Receive Date: 20060427
  Receipt Date: 20050415
  Transmission Date: 20061013
  Serious: Yes (Other)
  Sender: FDA-Public Use
  Company Number: 2005062646

PATIENT
  Sex: Male
  Weight: 79.3795 kg

DRUGS (11)
  1. ZITHROMAX [Suspect]
     Indication: PNEUMONIA
     Dosage: 500 MG (500 MG, DAILY), INTRAVENOUS
     Route: 042
     Dates: start: 20050414, end: 20050415
  2. CELCOXIB (CELCOXIB) [Concomitant]
  3. SALBUTAMOL (SALBUTAMOL) [Concomitant]
  4. IPRATROPIUM BROMIDE [Concomitant]
  5. DILTIAZEM HYDROCHLORIDE [Concomitant]
  6. PHENYTOIN SODIUM [Concomitant]
  7. INSULIN GLARGINE (INSULIN GLARGINE) [Concomitant]
  8. METHLPREDNISOLONE SODIUM SUCCINATE (METHYLPREDNISOLONE SODIUM SUCCINAT [Concomitant]
  9. MEDI FLU /USA/ (DEXTROMETHORPHAN HYDROBROMIDE, PSEUDOEPHEDRINE HYDROCH [Concomitant]
  10. VICODIN [Concomitant]
  11. CEFTRIAXONE [Concomitant]

REACTIONS (1)
  - ADMINISTRATION SITE REACTION [None]
